FAERS Safety Report 6076301-0 (Version None)
Quarter: 2009Q1

REPORT INFORMATION
  Report Type: 
  Country: None (occurrence: None)
  Receive Date: 20090212
  Receipt Date: 20090204
  Transmission Date: 20090719
  Serious: Yes (Other)
  Sender: FDA-Public Use
  Company Number: US-GENENTECH-276716

PATIENT

DRUGS (2)
  1. BEVACIZUMAB [Suspect]
     Indication: OVARIAN CANCER
     Dosage: 10 MG/KG, DAYS 1+15
     Route: 042
  2. TOPOTECAN [Concomitant]
     Indication: OVARIAN CANCER
     Dosage: 4 MG/M2, DAYS1,8,15

REACTIONS (1)
  - BONE MARROW FAILURE [None]
